FAERS Safety Report 22278906 (Version 8)
Quarter: 2025Q2

REPORT INFORMATION
  Report Type: Report from Study
  Country: US (occurrence: US)
  Receive Date: 20230503
  Receipt Date: 20250523
  Transmission Date: 20250716
  Serious: Yes (Hospitalization, Other)
  Sender: TAKEDA
  Company Number: US-TAKEDA-2022TUS017303

PATIENT
  Age: 49 Year
  Sex: Female

DRUGS (2)
  1. HUMAN IMMUNOGLOBULIN G\HYALURONIDASE RECOMBINANT HUMAN [Suspect]
     Active Substance: HUMAN IMMUNOGLOBULIN G\HYALURONIDASE (HUMAN RECOMBINANT)
     Indication: IgG deficiency
  2. HUMAN IMMUNOGLOBULIN G\HYALURONIDASE RECOMBINANT HUMAN [Suspect]
     Active Substance: HUMAN IMMUNOGLOBULIN G\HYALURONIDASE (HUMAN RECOMBINANT)
     Indication: Primary immunodeficiency syndrome

REACTIONS (21)
  - Infusion site discharge [Unknown]
  - Occipital neuralgia [Unknown]
  - Pulmonary thrombosis [Unknown]
  - Thrombosis [Unknown]
  - Migraine [Unknown]
  - Influenza like illness [Unknown]
  - Infection [Not Recovered/Not Resolved]
  - Urinary tract infection [Unknown]
  - Contusion [Unknown]
  - Eye infection [Unknown]
  - Sinusitis [Unknown]
  - COVID-19 [Unknown]
  - Insurance issue [Unknown]
  - Respiratory tract infection [Unknown]
  - Middle ear effusion [Not Recovered/Not Resolved]
  - Stomach mass [Unknown]
  - Inappropriate schedule of product administration [Unknown]
  - Eyelid infection [Unknown]
  - Vertigo [Unknown]
  - Swelling face [Unknown]
  - Arthralgia [Unknown]

NARRATIVE: CASE EVENT DATE: 20230126
